FAERS Safety Report 6390406-6 (Version None)
Quarter: 2009Q4

REPORT INFORMATION
  Report Type: 
  Country: None (occurrence: None)
  Receive Date: 20091006
  Receipt Date: 20091006
  Transmission Date: 20100525
  Serious: Yes (Life-Threatening, Hospitalization)
  Sender: FDA-Public Use
  Company Number: None

PATIENT
  Age: 69 Year
  Sex: Male

DRUGS (1)
  1. EPINEPHRINE [Suspect]
     Indication: DRUG ADMINISTRATION ERROR
     Dosage: 1-2 MG ONCE IV
     Route: 042
     Dates: start: 20090923, end: 20090923

REACTIONS (2)
  - ABDOMINAL PAIN [None]
  - CHEST PAIN [None]
